FAERS Safety Report 11788739 (Version 1)
Quarter: 2015Q4

REPORT INFORMATION
  Report Type: Spontaneous
  Country: US (occurrence: None)
  Receive Date: 20151130
  Receipt Date: 20151130
  Transmission Date: 20160305
  Serious: Yes (Other)
  Sender: FDA-Public Use
  Company Number: None

PATIENT
  Age: 57 Year
  Sex: Female
  Weight: 70.31 kg

DRUGS (3)
  1. LASTACAFT [Suspect]
     Active Substance: ALCAFTADINE
     Indication: HYPERSENSITIVITY
     Route: 047
     Dates: start: 201501, end: 201511
  2. METROGEL [Concomitant]
     Active Substance: METRONIDAZOLE
  3. LASTACAFT [Suspect]
     Active Substance: ALCAFTADINE
     Indication: EYE PRURITUS
     Route: 047
     Dates: start: 201501, end: 201511

REACTIONS (6)
  - Blindness [None]
  - Instillation site erythema [None]
  - Instillation site swelling [None]
  - Instillation site pain [None]
  - Lacrimation increased [None]
  - Instillation site burn [None]

NARRATIVE: CASE EVENT DATE: 20151126
